FAERS Safety Report 12388086 (Version 1)
Quarter: 2016Q2

REPORT INFORMATION
  Report Type: Spontaneous
  Country: US (occurrence: None)
  Receive Date: 20160519
  Receipt Date: 20160519
  Transmission Date: 20160815
  Serious: No
  Sender: FDA-Public Use
  Company Number: None

PATIENT
  Sex: Female

DRUGS (1)
  1. MOMETASONE FUROATE ORAL INHALATI [Suspect]
     Active Substance: MOMETASONE FUROATE

REACTIONS (1)
  - Cough [None]
